FAERS Safety Report 19614722 (Version 2)
Quarter: 2021Q3

REPORT INFORMATION
  Report Type: Spontaneous
  Country: BR (occurrence: BR)
  Receive Date: 20210727
  Receipt Date: 20210812
  Transmission Date: 20211014
  Serious: Yes (Other)
  Sender: FDA-Public Use
  Company Number: BR-BAYER-2021-182456

PATIENT
  Age: 19 Year
  Sex: Male
  Weight: 89 kg

DRUGS (10)
  1. SINTOCALMY [Concomitant]
     Dosage: 1 DF, QD
  2. CITONEURIN [CYANOCOBALAMIN;PYRIDOXINE HYDROCHLORIDE;THIAMINE HYDRO [Concomitant]
     Dosage: 1 DF, QD
     Route: 048
     Dates: start: 20210705
  3. NOVALGINA [Concomitant]
     Active Substance: METAMIZOLE SODIUM
     Dosage: 1 DF, QID
     Route: 048
     Dates: start: 20210702
  4. PANTOPRAZOL A [Concomitant]
     Dosage: 40 MG, QD
  5. CRESTOR [Concomitant]
     Active Substance: ROSUVASTATIN CALCIUM
     Dosage: 10 MG, QD
     Route: 048
     Dates: start: 20210702
  6. LYRICA [Concomitant]
     Active Substance: PREGABALIN
     Dosage: 75 MG, BID
     Route: 048
     Dates: start: 20210705
  7. TYLEX CD [Concomitant]
     Dosage: 1 DF, Q8HR
  8. ROSUVASTATINE ACCORD [Concomitant]
     Active Substance: ROSUVASTATIN CALCIUM
     Dosage: 10 MG, QD
  9. GADOVIST [Suspect]
     Active Substance: GADOBUTROL
     Indication: MAGNETIC RESONANCE IMAGING
     Dosage: 4 MG, ONCE
     Route: 042
     Dates: start: 20210705, end: 20210705
  10. GABAPENTINE [Concomitant]
     Active Substance: GABAPENTIN
     Dosage: 300 MG, BID
     Route: 048
     Dates: start: 20210703

REACTIONS (4)
  - Lip oedema [Recovered/Resolved]
  - Urticaria [Recovered/Resolved]
  - Throat irritation [Recovered/Resolved]
  - Nasal congestion [Recovered/Resolved]

NARRATIVE: CASE EVENT DATE: 20210705
